FAERS Safety Report 7345022-6 (Version None)
Quarter: 2011Q1

REPORT INFORMATION
  Report Type: 
  Country: None (occurrence: None)
  Receive Date: 20110310
  Receipt Date: 20110214
  Transmission Date: 20110831
  Serious: No
  Sender: FDA-Public Use
  Company Number: US-B.I. PHARMACEUTICALS,INC./RIDGEFIELD-2010-BP-15351BP

PATIENT
  Sex: Male

DRUGS (7)
  1. PRADAXA [Suspect]
     Indication: ATRIAL FIBRILLATION
     Dosage: 300 MG
     Route: 048
     Dates: start: 20101216
  2. AVAPRO [Concomitant]
     Indication: HYPERTENSION
     Dosage: 100 MG
     Route: 048
  3. FINASTERIDE [Concomitant]
     Indication: PROSTATIC DISORDER
     Dosage: 5 MG
     Route: 048
  4. METOPROLOL ER SUCCINATE [Concomitant]
     Dosage: 50 MG
     Route: 048
  5. ALCON [Concomitant]
     Dosage: PERCENT; ONE DROPE TWICE DAY
     Route: 048
  6. XALAPTAN [Concomitant]
     Dosage: ONE DROP EACH EYE BEDTIME
     Route: 031
  7. LIPITOR [Concomitant]
     Indication: BLOOD CHOLESTEROL INCREASED
     Dosage: 10 MG
     Route: 048

REACTIONS (1)
  - OROPHARYNGEAL PAIN [None]
